FAERS Safety Report 16158038 (Version 4)
Quarter: 2019Q2

REPORT INFORMATION
  Report Type: Spontaneous
  Country: IT (occurrence: IT)
  Receive Date: 20190404
  Receipt Date: 20190611
  Transmission Date: 20190711
  Serious: Yes (Hospitalization, Other)
  Sender: FDA-Public Use
  Company Number: IT-MYLANLABS-2019M1030735

PATIENT
  Age: 17 Year
  Sex: Male

DRUGS (10)
  1. MEPACRINE /00221302/ [Suspect]
     Active Substance: QUINACRINE HYDROCHLORIDE
     Indication: AUTOINFLAMMATORY DISEASE
     Dosage: UNK
     Route: 065
  2. VENTAVIS [Suspect]
     Active Substance: ILOPROST
     Indication: PRODUCT USED FOR UNKNOWN INDICATION
     Dosage: UNK
     Route: 065
  3. RUXOLITINIB [Suspect]
     Active Substance: RUXOLITINIB
     Indication: AUTOINFLAMMATORY DISEASE
     Dosage: 7.5 MG, BID (MAINTAINED)
     Route: 065
  4. RUXOLITINIB [Suspect]
     Active Substance: RUXOLITINIB
     Dosage: 10 MG, BID
     Route: 065
  5. RUXOLITINIB [Suspect]
     Active Substance: RUXOLITINIB
     Dosage: HIGH DOSES
     Route: 065
  6. AMBRISENTAN [Suspect]
     Active Substance: AMBRISENTAN
     Indication: PRODUCT USED FOR UNKNOWN INDICATION
     Dosage: UNK
     Route: 065
  7. ABATACEPT [Suspect]
     Active Substance: ABATACEPT
     Indication: AUTOINFLAMMATORY DISEASE
     Dosage: UNK
     Route: 065
  8. SILDENAFIL. [Suspect]
     Active Substance: SILDENAFIL
     Indication: PULMONARY HYPERTENSION
     Dosage: UNK
     Route: 065
  9. ILOPROST. [Suspect]
     Active Substance: ILOPROST
     Indication: PULMONARY HYPERTENSION
     Dosage: UNK
     Route: 065
  10. HYDROXYCHLOROQUINE                 /00072603/ [Suspect]
     Active Substance: HYDROXYCHLOROQUINE SULFATE
     Indication: AUTOINFLAMMATORY DISEASE
     Dosage: UNK
     Route: 065

REACTIONS (5)
  - Pancytopenia [Recovering/Resolving]
  - Product administered to patient of inappropriate age [Unknown]
  - Pulmonary arterial hypertension [Recovering/Resolving]
  - Off label use [Unknown]
  - Cardiac dysfunction [Recovering/Resolving]
